FAERS Safety Report 8813336 (Version 1)
Quarter: 2012Q4

REPORT INFORMATION
  Report Type: 
  Country: US (occurrence: US)
  Receive Date: 20120927
  Receipt Date: 20120927
  Transmission Date: 20130627
  Serious: No
  Sender: FDA-Public Use
  Company Number: US-AMGEN-USASP2012046217

PATIENT
  Age: 56 Year
  Sex: Female

DRUGS (19)
  1. PROLIA [Suspect]
     Indication: OSTEOPOROSIS
     Dosage: 60 mg, q6mo
     Dates: start: 20120627
  2. GABAPENTIN [Concomitant]
     Dosage: UNK
  3. SOMA [Concomitant]
     Dosage: UNK
  4. TRAMADOL [Concomitant]
     Indication: BACK PAIN
  5. NAPROXEN [Concomitant]
     Dosage: UNK
  6. SONATA                             /00061001/ [Concomitant]
     Dosage: UNK
  7. HYDROCODONE [Concomitant]
     Indication: BACK PAIN
     Dosage: UNK
  8. CALCIUM PLUS D3 [Concomitant]
     Dosage: UNK
  9. VITAMIN E                          /00110501/ [Concomitant]
     Dosage: UNK
  10. VITAMIN C                          /00008001/ [Concomitant]
     Dosage: UNK
  11. MAGNESIUM [Concomitant]
     Dosage: UNK
  12. POTASSIUM [Concomitant]
     Dosage: UNK
  13. ECHINACEA                          /01323501/ [Concomitant]
     Dosage: UNK
  14. PROPRANOLOL [Concomitant]
  15. TOPIRAMATE [Concomitant]
  16. SUMATRIPTAN [Concomitant]
     Dosage: UNK
  17. SERTRALINE [Concomitant]
     Dosage: UNK
  18. CRANBERRY                          /01512301/ [Concomitant]
     Dosage: UNK
  19. SILYMARIN [Concomitant]
     Dosage: UNK

REACTIONS (2)
  - Tooth disorder [Not Recovered/Not Resolved]
  - Toothache [Unknown]
